FAERS Safety Report 9260360 (Version 1)
Quarter: 2013Q2

REPORT INFORMATION
  Report Type: Spontaneous
  Country: JP (occurrence: JP)
  Receive Date: 20130429
  Receipt Date: 20130429
  Transmission Date: 20140414
  Serious: Yes (Hospitalization)
  Sender: FDA-Public Use
  Company Number: PHHY2013JP041431

PATIENT
  Age: 90 Year
  Sex: Female

DRUGS (3)
  1. RIVASTIGMIN [Suspect]
     Indication: DEMENTIA ALZHEIMER^S TYPE
     Dosage: 4.5 MG, (ONCE A DAY)
     Route: 062
     Dates: start: 201111
  2. RIVASTIGMIN [Suspect]
     Dosage: 18 MG, (ONCE A DAY)
     Route: 062
     Dates: start: 201201, end: 201212
  3. RIVASTIGMIN [Suspect]
     Dosage: 18 MG, (CUT INTO HALVES)
     Route: 062
     Dates: start: 201212, end: 201304

REACTIONS (3)
  - Pneumonia aspiration [Unknown]
  - Bradycardia [Unknown]
  - Wrong technique in drug usage process [Unknown]
